FAERS Safety Report 5746529-5 (Version None)
Quarter: 2008Q2

REPORT INFORMATION
  Report Type: 
  Country: None (occurrence: None)
  Receive Date: 20080522
  Receipt Date: 20070831
  Transmission Date: 20081010
  Serious: No
  Sender: FDA-Public Use
  Company Number: US-BRISTOL-MYERS SQUIBB COMPANY-13895271

PATIENT
  Age: 51 Year
  Sex: Female

DRUGS (7)
  1. CYCLOPHOSPHAMIDE [Suspect]
     Indication: BREAST CANCER
  2. DOXORUBICIN HCL [Suspect]
     Indication: BREAST CANCER
  3. ALOXI [Suspect]
     Indication: BREAST CANCER
     Route: 042
     Dates: start: 20070828
  4. ZOLOFT [Concomitant]
  5. AMITRIPTYLINE HCL [Concomitant]
  6. FAMOTIDINE [Concomitant]
  7. CALCIUM + VITAMIN D [Concomitant]

REACTIONS (2)
  - NAUSEA [None]
  - VOMITING [None]
